FAERS Safety Report 5407032-5 (Version None)
Quarter: 2007Q3

REPORT INFORMATION
  Report Type: 
  Country: None (occurrence: None)
  Receive Date: 20070807
  Receipt Date: 20070731
  Transmission Date: 20080115
  Serious: Yes (Hospitalization)
  Sender: FDA-Public Use
  Company Number: DE-AVENTIS-200712072DE

PATIENT
  Age: 74 Year
  Sex: Female

DRUGS (12)
  1. DOCETAXEL [Suspect]
     Indication: NON-SMALL CELL LUNG CANCER
     Route: 042
     Dates: start: 20070508, end: 20070723
  2. CETUXIMAB [Suspect]
     Indication: NON-SMALL CELL LUNG CANCER
     Route: 042
     Dates: start: 20070508, end: 20070723
  3. CARBOPLATIN [Suspect]
     Indication: NON-SMALL CELL LUNG CANCER
     Dosage: DOSE: AUC 5
     Route: 042
     Dates: start: 20070508, end: 20070723
  4. TOREM                              /01036501/ [Suspect]
     Indication: DRUG USE FOR UNKNOWN INDICATION
  5. ACC [Concomitant]
     Indication: DRUG USE FOR UNKNOWN INDICATION
  6. UROXATRAL [Concomitant]
     Indication: DRUG USE FOR UNKNOWN INDICATION
  7. QUERTO [Concomitant]
     Indication: DRUG USE FOR UNKNOWN INDICATION
  8. ALLOPURINOL [Concomitant]
     Indication: DRUG USE FOR UNKNOWN INDICATION
  9. DECORTIN [Concomitant]
     Indication: DRUG USE FOR UNKNOWN INDICATION
  10. NEXIUM [Concomitant]
     Indication: DRUG USE FOR UNKNOWN INDICATION
  11. LORAZEPAM [Concomitant]
     Indication: DRUG USE FOR UNKNOWN INDICATION
  12. KALIUM CHLORATUM STREULI [Concomitant]
     Indication: DRUG USE FOR UNKNOWN INDICATION
     Dosage: DOSE: NOT REPORTED

REACTIONS (3)
  - BONE MARROW FAILURE [None]
  - HYPOKALAEMIA [None]
  - NEUTROPENIA [None]
